FAERS Safety Report 21054808 (Version 1)
Quarter: 2022Q3

REPORT INFORMATION
  Report Type: Spontaneous
  Country: None (occurrence: BR)
  Receive Date: 20220707
  Receipt Date: 20220707
  Transmission Date: 20221027
  Serious: Yes (Life-Threatening, Hospitalization, Disabling)
  Sender: FDA-Public Use
  Company Number: BR-Nostrum Laboratories, Inc.-2130633

PATIENT
  Age: 51 Year
  Sex: Male

DRUGS (2)
  1. MORPHINE SULFATE [Suspect]
     Active Substance: MORPHINE SULFATE
     Indication: Drug abuser
     Route: 013
  2. MICROCRYSTALLINE CELLULOSE [Interacting]
     Active Substance: MICROCRYSTALLINE CELLULOSE
     Route: 013

REACTIONS (7)
  - Peripheral ischaemia [Recovered/Resolved with Sequelae]
  - Compartment syndrome [Recovered/Resolved with Sequelae]
  - Fasciotomy [Recovered/Resolved]
  - Rhabdomyolysis [Recovered/Resolved]
  - Acute kidney injury [Recovered/Resolved]
  - Finger amputation [Recovered/Resolved with Sequelae]
  - Finger amputation [Recovered/Resolved with Sequelae]
